FAERS Safety Report 13571114 (Version 1)
Quarter: 2017Q2

REPORT INFORMATION
  Report Type: Spontaneous
  Country: US (occurrence: US)
  Receive Date: 20170522
  Receipt Date: 20170522
  Transmission Date: 20170830
  Serious: Yes (Disabling)
  Sender: FDA-Public Use
  Company Number: None

PATIENT
  Age: 22 Year
  Sex: Male
  Weight: 87.75 kg

DRUGS (1)
  1. CELEXA [Suspect]
     Active Substance: CITALOPRAM HYDROBROMIDE
     Indication: MOOD ALTERED
     Route: 048
     Dates: start: 20110201, end: 20110709

REACTIONS (11)
  - Dizziness [None]
  - Dysphoria [None]
  - Depersonalisation/derealisation disorder [None]
  - Headache [None]
  - Communication disorder [None]
  - Impaired quality of life [None]
  - Eye pain [None]
  - Photophobia [None]
  - Crying [None]
  - Reading disorder [None]
  - Brain injury [None]

NARRATIVE: CASE EVENT DATE: 20110709
